FAERS Safety Report 8048368-1 (Version None)
Quarter: 2012Q1

REPORT INFORMATION
  Report Type: 
  Country: None (occurrence: None)
  Receive Date: 20120117
  Receipt Date: 20120112
  Transmission Date: 20120608
  Serious: No
  Sender: FDA-Public Use
  Company Number: US-PFIZER INC-2012009876

PATIENT
  Sex: Male
  Weight: 88 kg

DRUGS (3)
  1. OXYGEN [Concomitant]
     Indication: MIGRAINE
     Dosage: UNK, AS NEEDED
  2. LYRICA [Suspect]
     Indication: MIGRAINE
     Dosage: 50 MG, 1X/DAY
     Route: 048
     Dates: start: 20111101
  3. INDOMETHACIN [Concomitant]
     Indication: MIGRAINE
     Dosage: UNK

REACTIONS (1)
  - HEADACHE [None]
